FAERS Safety Report 21047486 (Version 1)
Quarter: 2022Q3

REPORT INFORMATION
  Report Type: Spontaneous
  Country: CA (occurrence: CA)
  Receive Date: 20220706
  Receipt Date: 20220706
  Transmission Date: 20221027
  Serious: Yes (Death)
  Sender: FDA-Public Use
  Company Number: CA-drreddys-SPO/CAN/22/0151768

PATIENT
  Age: 68 Year

DRUGS (1)
  1. AZACITIDINE [Suspect]
     Active Substance: AZACITIDINE
     Indication: Acute myeloid leukaemia
     Dosage: APPROXIMATELY 15 NOVEMBER 2021, 75 MG/M2 FOR 7 DAYS EVERY 28 DAYS
     Dates: start: 20211115

REACTIONS (1)
  - Death [Fatal]
